FAERS Safety Report 9853260 (Version 2)
Quarter: 2014Q1

REPORT INFORMATION
  Report Type: Spontaneous
  Country: JP (occurrence: JP)
  Receive Date: 20140129
  Receipt Date: 20140129
  Transmission Date: 20141002
  Serious: Yes (Hospitalization)
  Sender: FDA-Public Use
  Company Number: JP-BRISTOL-MYERS SQUIBB COMPANY-18595280

PATIENT
  Age: 56 Year
  Sex: Male
  Weight: 84 kg

DRUGS (8)
  1. BYETTA [Suspect]
     Indication: DIABETES MELLITUS
     Route: 058
     Dates: start: 201211, end: 20130215
  2. GLIMICRON [Concomitant]
     Dosage: TABS
     Route: 048
  3. SEIBULE [Concomitant]
     Dosage: TABS
     Route: 048
  4. PIOGLITAZONE HCL [Concomitant]
     Dosage: TABS
     Route: 048
  5. OLMESARTAN MEDOXOMIL [Concomitant]
     Dosage: TABS
     Route: 048
  6. CRESTOR [Concomitant]
     Dosage: TABS
     Route: 048
  7. METFORMIN HCL [Concomitant]
     Dosage: TABS
     Route: 048
  8. ALACEPRIL [Concomitant]
     Dosage: TABS
     Route: 048

REACTIONS (2)
  - Pancreatitis necrotising [Recovering/Resolving]
  - Pyrexia [Unknown]
